FAERS Safety Report 7076353-5 (Version None)
Quarter: 2010Q4

REPORT INFORMATION
  Report Type: 
  Country: None (occurrence: None)
  Receive Date: 20101021
  Receipt Date: 20101008
  Transmission Date: 20110411
  Serious: Yes (Hospitalization)
  Sender: FDA-Public Use
  Company Number: US-003568

PATIENT
  Sex: Female
  Weight: 87.0906 kg

DRUGS (6)
  1. TRANEXAMIC ACID [Suspect]
     Indication: UTERINE HAEMORRHAGE
     Dosage: (1300 MG TID)
     Dates: start: 20100812, end: 20100813
  2. LOESTRIN (NOT SPECIFIED) [Suspect]
     Indication: UTERINE HAEMORRHAGE
     Dates: start: 20100601
  3. IRON [Concomitant]
  4. MULTIPLE VITAMINS [Concomitant]
  5. DARVOCET [Concomitant]
  6. VICODIN [Concomitant]

REACTIONS (5)
  - ANAEMIA OF CHRONIC DISEASE [None]
  - HEAD INJURY [None]
  - ISCHAEMIC STROKE [None]
  - SINUS TACHYCARDIA [None]
  - VASCULITIS [None]
